FAERS Safety Report 25389799 (Version 1)
Quarter: 2025Q2

REPORT INFORMATION
  Report Type: Spontaneous
  Country: US (occurrence: None)
  Receive Date: 20250602
  Receipt Date: 20250602
  Transmission Date: 20250716
  Serious: Yes (Hospitalization)
  Sender: FDA-CTU
  Company Number: None

PATIENT
  Age: 71 Year
  Sex: Male

DRUGS (11)
  1. GAMMAGARD LIQUID [Suspect]
     Active Substance: HUMAN IMMUNOGLOBULIN G
     Indication: Hypogammaglobulinaemia
     Dosage: FREQUENCY : TWICE A DAY;?
     Route: 058
  2. ALBUTEROL SULFATE [Concomitant]
     Active Substance: ALBUTEROL SULFATE
  3. ASPIRIN CHW [Concomitant]
  4. ATORVASTATIN [Concomitant]
     Active Substance: ATORVASTATIN
  5. AZELASTINE SPR 0.1% [Concomitant]
  6. BUDESONIDE POW [Concomitant]
  7. CELLCEPT [Concomitant]
     Active Substance: MYCOPHENOLATE MOFETIL
  8. CICLOPIROX GEL [Concomitant]
  9. FARXIGA TAB [Concomitant]
  10. FLUTICASONE SPR [Concomitant]
  11. FREESTY LIBR KIT 3 SENSOR [Concomitant]

REACTIONS (2)
  - Illness [None]
  - Job dissatisfaction [None]

NARRATIVE: CASE EVENT DATE: 20250501
